FAERS Safety Report 17537412 (Version 1)
Quarter: 2020Q1

REPORT INFORMATION
  Report Type: Spontaneous
  Country: US (occurrence: US)
  Receive Date: 20200313
  Receipt Date: 20200313
  Transmission Date: 20200409
  Serious: Yes (Death, Other)
  Sender: FDA-Public Use
  Company Number: US-STRIDES ARCOLAB LIMITED-2020SP002891

PATIENT
  Age: 50 Year
  Sex: Female

DRUGS (2)
  1. AMLODIPINE [Suspect]
     Active Substance: AMLODIPINE BESYLATE
     Dosage: 5 MILLIGRAM OVER SEVERAL HOURS
     Route: 048
  2. AMLODIPINE [Suspect]
     Active Substance: AMLODIPINE BESYLATE
     Indication: HYPERTENSION
     Dosage: 5 MILLIGRAM FOR HYPERTENSION
     Route: 065

REACTIONS (11)
  - Hypoglycaemia [Unknown]
  - Respiratory distress [Unknown]
  - Completed suicide [Fatal]
  - Fluid overload [Unknown]
  - Intestinal perforation [Unknown]
  - Vomiting [Unknown]
  - Hypotension [Unknown]
  - Lactic acidosis [Unknown]
  - Urine output decreased [Unknown]
  - Overdose [Fatal]
  - Acute kidney injury [Unknown]
